FAERS Safety Report 7646671-8 (Version None)
Quarter: 2011Q3

REPORT INFORMATION
  Report Type: 
  Country: None (occurrence: None)
  Receive Date: 20110729
  Receipt Date: 20110729
  Transmission Date: 20111222
  Serious: Yes (Other)
  Sender: FDA-Public Use
  Company Number: None

PATIENT
  Sex: Female
  Weight: 58.514 kg

DRUGS (1)
  1. PRAMIPEXOLE DIHYDROCHLORIDE [Suspect]
     Indication: RESTLESS LEGS SYNDROME
     Dosage: 1 MG 1 @ BEDTIME
     Dates: start: 20110701

REACTIONS (17)
  - HEADACHE [None]
  - MIDDLE INSOMNIA [None]
  - URINE OUTPUT DECREASED [None]
  - UNEVALUABLE EVENT [None]
  - NAUSEA [None]
  - VOMITING [None]
  - FLUID INTAKE REDUCED [None]
  - DYSSTASIA [None]
  - CARDIAC DISORDER [None]
  - CONDITION AGGRAVATED [None]
  - URINE ABNORMALITY [None]
  - PYREXIA [None]
  - INSOMNIA [None]
  - VISUAL IMPAIRMENT [None]
  - CHILLS [None]
  - APHAGIA [None]
  - DIZZINESS POSTURAL [None]
